FAERS Safety Report 5213234-3 (Version None)
Quarter: 2007Q1

REPORT INFORMATION
  Report Type: 
  Country: None (occurrence: None)
  Receive Date: 20070119
  Receipt Date: 20070105
  Transmission Date: 20070707
  Serious: Yes (Death, Other)
  Sender: FDA-Public Use
  Company Number: DE-NOVOPROD-257604

PATIENT
  Age: 53 Year
  Sex: Male

DRUGS (7)
  1. NOVOSEVEN [Suspect]
     Indication: HEPATIC RUPTURE
  2. DISOPRIVAN [Concomitant]
  3. FENTANYL TRANSDERMAL SYSTEM [Concomitant]
  4. NOREPINEPHRINE BITARTRATE [Concomitant]
  5. HEPARIN [Concomitant]
  6. LASIX [Concomitant]
  7. PANTOZOL [Concomitant]

REACTIONS (2)
  - CEREBRAL HAEMORRHAGE [None]
  - NECROTISING COLITIS [None]
